FAERS Safety Report 9746751 (Version 1)
Quarter: 2013Q4

REPORT INFORMATION
  Report Type: Report from Study
  Country: US (occurrence: US)
  Receive Date: 20131211
  Receipt Date: 20131211
  Transmission Date: 20140711
  Serious: Yes (Other)
  Sender: FDA-Public Use
  Company Number: US-ABBVIE-13P-163-1175854-00

PATIENT
  Sex: Male
  Weight: 77.18 kg

DRUGS (4)
  1. HUMIRA [Suspect]
     Indication: RHEUMATOID ARTHRITIS
  2. HUMIRA [Suspect]
     Dates: start: 2012
  3. UNNAMED MEDICATION [Concomitant]
     Indication: HEADACHE
  4. UNNAMED MEDICATION [Concomitant]
     Indication: INSOMNIA

REACTIONS (2)
  - Bladder papilloma [Unknown]
  - Pain [Recovered/Resolved]
